FAERS Safety Report 9296006 (Version 1)
Quarter: 2013Q2

REPORT INFORMATION
  Report Type: Spontaneous
  Country: US (occurrence: US)
  Receive Date: 20130517
  Receipt Date: 20130517
  Transmission Date: 20140414
  Serious: Yes (Death)
  Sender: FDA-Public Use
  Company Number: US-SANOFI-AVENTIS-2013SA050069

PATIENT
  Age: 45 Year
  Sex: Male

DRUGS (1)
  1. LOVENOX [Suspect]

REACTIONS (1)
  - Ill-defined disorder [Fatal]
